FAERS Safety Report 7694533 (Version 4)
Quarter: 2013Q3

REPORT INFORMATION
  Report Type: Report from Study
  Country: JP (occurrence: JP)
  Receive Date: 20101206
  Receipt Date: 20130910
  Transmission Date: 20140515
  Serious: Yes (Life-Threatening, Hospitalization, Disabling)
  Sender: FDA-Public Use
  Company Number: JP-BRISTOL-MYERS SQUIBB COMPANY-15417140

PATIENT
  Age: 54 Year
  Sex: Male

DRUGS (8)
  1. SPRYCEL [Suspect]
     Indication: ACUTE LYMPHOCYTIC LEUKAEMIA
     Dosage: 70MG BID:07APR10-09MAY10?100MG:26JUN10-30JUL10.
     Route: 048
     Dates: start: 20100407, end: 20100730
  2. METHYCOBAL [Concomitant]
     Dosage: TABS.?ONGOING.
     Route: 048
  3. BAKTAR [Concomitant]
     Indication: PROPHYLAXIS
     Route: 048
  4. ACTOS [Concomitant]
     Route: 048
  5. LASIX [Concomitant]
     Indication: OEDEMA
     Route: 048
  6. PREDNISOLONE [Concomitant]
     Indication: ACUTE LYMPHOCYTIC LEUKAEMIA
     Route: 048
  7. HUMULIN R [Concomitant]
     Dosage: 1DF=30-50 UNIT
     Route: 058
     Dates: start: 20100511
  8. FAMOTIDINE [Concomitant]
     Indication: PROPHYLAXIS
     Route: 048

REACTIONS (2)
  - Alveolar proteinosis [Recovering/Resolving]
  - Pneumonitis [Recovering/Resolving]
